FAERS Safety Report 4832210-3 (Version None)
Quarter: 2005Q4

REPORT INFORMATION
  Report Type: 
  Country: None (occurrence: None)
  Receive Date: 20051118
  Receipt Date: 20050930
  Transmission Date: 20060501
  Serious: Yes (Hospitalization, Other)
  Sender: FDA-Public Use
  Company Number: US-MERCK-0510USA01970

PATIENT
  Age: 48 Year
  Sex: Male
  Weight: 91 kg

DRUGS (12)
  1. VIOXX [Suspect]
     Indication: NECK PAIN
     Route: 048
     Dates: start: 20030108, end: 20040423
  2. VIOXX [Suspect]
     Route: 065
  3. VIOXX [Suspect]
     Indication: SHOULDER PAIN
     Route: 048
     Dates: start: 20030108, end: 20040423
  4. VIOXX [Suspect]
     Route: 065
  5. ACCUPRIL [Concomitant]
     Route: 065
  6. ACEON [Concomitant]
     Route: 065
  7. AMIODARONE [Concomitant]
     Route: 065
  8. COREG [Concomitant]
     Route: 065
  9. FUROSEMIDE [Concomitant]
     Route: 065
  10. GEMFIBROZIL [Concomitant]
     Route: 065
  11. WELLBUTRIN [Concomitant]
     Route: 065
  12. ZYMAR [Concomitant]
     Route: 065

REACTIONS (3)
  - CARDIAC FAILURE CONGESTIVE [None]
  - DEPRESSION [None]
  - MYOCARDIAL INFARCTION [None]
